FAERS Safety Report 13029877 (Version 1)
Quarter: 2016Q4

REPORT INFORMATION
  Report Type: Spontaneous
  Country: US (occurrence: US)
  Receive Date: 20161214
  Receipt Date: 20161214
  Transmission Date: 20170207
  Serious: Yes (Other)
  Sender: FDA-Public Use
  Company Number: None

PATIENT
  Age: 45 Year
  Sex: Female
  Weight: 82.8 kg

DRUGS (12)
  1. TIZANIDINE. [Concomitant]
     Active Substance: TIZANIDINE
  2. FENTANYL. [Concomitant]
     Active Substance: FENTANYL
  3. SALSALATE. [Concomitant]
     Active Substance: SALSALATE
  4. HIZENTRIA [Concomitant]
  5. TORADOL [Concomitant]
     Active Substance: KETOROLAC TROMETHAMINE
  6. 10/325 HYDROCODINE [Concomitant]
  7. PENNSAID [Suspect]
     Active Substance: DICLOFENAC SODIUM
     Indication: INFLAMMATION
     Dosage: QUANTITY:1 PER UNIT DOSE PACK;?
     Route: 061
     Dates: start: 20161117, end: 20161117
  8. ORENCIA [Concomitant]
     Active Substance: ABATACEPT
  9. SOLU-MEDROL [Concomitant]
     Active Substance: METHYLPREDNISOLONE SODIUM SUCCINATE
  10. PREDNISONE. [Concomitant]
     Active Substance: PREDNISONE
  11. NEXIUM [Concomitant]
     Active Substance: ESOMEPRAZOLE MAGNESIUM
  12. MIRALAX [Concomitant]
     Active Substance: POLYETHYLENE GLYCOL 3350

REACTIONS (3)
  - Blister [None]
  - Hypersensitivity [None]
  - Pruritus [None]

NARRATIVE: CASE EVENT DATE: 20161118
